FAERS Safety Report 8973582 (Version 1)
Quarter: 2012Q4

REPORT INFORMATION
  Report Type: 
  Country: US (occurrence: US)
  Receive Date: 20121218
  Receipt Date: 20121218
  Transmission Date: 20130627
  Serious: Yes (Other)
  Sender: FDA-Public Use
  Company Number: US-BRISTOL-MYERS SQUIBB COMPANY-16421398

PATIENT
  Age: 51 Year
  Sex: Male

DRUGS (6)
  1. ABILIFY [Suspect]
     Indication: MAJOR DEPRESSION
     Dosage: Stopped Approx 26Feb2012
     Route: 048
     Dates: start: 20120209, end: 201202
  2. PAXIL [Concomitant]
     Dosage: every morning
  3. DEPLIN [Concomitant]
  4. VISTARIL [Concomitant]
     Dosage: Vistaril pamoate
  5. SIMVASTATIN [Concomitant]
  6. VITAMIN D [Concomitant]

REACTIONS (2)
  - Dyspnoea [Recovered/Resolved]
  - Muscle fatigue [Recovered/Resolved]
